FAERS Safety Report 6024588-2 (Version None)
Quarter: 2008Q4

REPORT INFORMATION
  Report Type: 
  Country: None (occurrence: None)
  Receive Date: 20081231
  Receipt Date: 20081113
  Transmission Date: 20090506
  Serious: No
  Sender: FDA-Public Use
  Company Number: US-BRISTOL-MYERS SQUIBB COMPANY-14405278

PATIENT
  Age: 62 Year
  Sex: Male
  Weight: 84 kg

DRUGS (8)
  1. ORENCIA [Suspect]
     Indication: RHEUMATOID ARTHRITIS
     Dosage: STARTED ORENCIA IN 03/2008 OR 04/2008 7 INFUSIONS
     Dates: start: 20080101
  2. PREDNISONE [Concomitant]
  3. CELEBREX [Concomitant]
  4. MOTRIN [Concomitant]
  5. METFORMIN HCL [Concomitant]
  6. JANUVIA [Concomitant]
  7. ZOCOR [Concomitant]
  8. COZAAR [Concomitant]

REACTIONS (1)
  - BLOOD GLUCOSE INCREASED [None]
